FAERS Safety Report 20602664 (Version 4)
Quarter: 2022Q3

REPORT INFORMATION
  Report Type: Report from Study
  Country: US (occurrence: US)
  Receive Date: 20220316
  Receipt Date: 20220704
  Transmission Date: 20221027
  Serious: No
  Sender: FDA-Public Use
  Company Number: US-NOVARTISTESTPH-NVSC2022US060816

PATIENT
  Sex: Female

DRUGS (1)
  1. COSENTYX [Suspect]
     Active Substance: SECUKINUMAB
     Indication: Psoriasis
     Dosage: 300 MG, QMO
     Route: 058
     Dates: start: 20220210

REACTIONS (5)
  - Stress [Unknown]
  - Psoriasis [Recovering/Resolving]
  - Pruritus [Recovering/Resolving]
  - Sinusitis [Unknown]
  - Drug ineffective [Unknown]
